FAERS Safety Report 6206475-X (Version None)
Quarter: 2009Q2

REPORT INFORMATION
  Report Type: 
  Country: None (occurrence: None)
  Receive Date: 20090528
  Receipt Date: 20090520
  Transmission Date: 20091009
  Serious: Yes (Death, Hospitalization)
  Sender: FDA-Public Use
  Company Number: US-AMGEN-KDL344482

PATIENT
  Sex: Female
  Weight: 59.9 kg

DRUGS (8)
  1. PROCRIT [Suspect]
     Indication: ANAEMIA
     Route: 058
     Dates: end: 20090428
  2. COUMADIN [Concomitant]
     Route: 048
  3. ATENOLOL [Concomitant]
  4. LISINOPRIL [Concomitant]
  5. CALCIUM [Concomitant]
     Dates: end: 20090101
  6. ALENDRONATE SODIUM [Concomitant]
     Dates: end: 20090101
  7. VITAMIN B-12 [Concomitant]
  8. VITAMIN B COMPLEX CAP [Concomitant]

REACTIONS (16)
  - ASTHENIA [None]
  - CEREBROVASCULAR ACCIDENT [None]
  - CHEST DISCOMFORT [None]
  - CHILLS [None]
  - DECREASED APPETITE [None]
  - FATIGUE [None]
  - FEELING COLD [None]
  - HAEMOGLOBIN DECREASED [None]
  - HYPERHIDROSIS [None]
  - MALAISE [None]
  - MEDICATION ERROR [None]
  - MOBILITY DECREASED [None]
  - MYOCARDIAL INFARCTION [None]
  - PAIN IN EXTREMITY [None]
  - RED BLOOD CELL SEDIMENTATION RATE ABNORMAL [None]
  - WEIGHT DECREASED [None]
